APPROVED DRUG PRODUCT: SUMATRIPTAN SUCCINATE
Active Ingredient: SUMATRIPTAN SUCCINATE
Strength: EQ 6MG BASE/0.5ML (EQ 12MG BASE/ML)
Dosage Form/Route: INJECTABLE;SUBCUTANEOUS
Application: A215651 | Product #001 | TE Code: AP
Applicant: ONESOURCE SPECIALTY PTE LTD
Approved: Nov 21, 2024 | RLD: No | RS: No | Type: RX